FAERS Safety Report 8292975 (Version 3)
Quarter: 2012Q4

REPORT INFORMATION
  Report Type: 
  Country: US (occurrence: US)
  Receive Date: 20111215
  Receipt Date: 20121005
  Transmission Date: 20130627
  Serious: Yes (Hospitalization, Other)
  Sender: FDA-Public Use
  Company Number: US-ROCHE-788639

PATIENT
  Age: 20 None
  Sex: Male
  Weight: 53.12 kg

DRUGS (6)
  1. ACCUTANE [Suspect]
     Indication: ACNE
     Route: 065
     Dates: start: 198401, end: 198501
  2. ACCUTANE [Suspect]
     Route: 065
     Dates: start: 198510, end: 198701
  3. ACCUTANE [Suspect]
     Route: 065
     Dates: start: 198706, end: 198707
  4. DOXYCYCLINE [Concomitant]
     Indication: ACNE
  5. TETRACYCLINE [Concomitant]
     Indication: ACNE
  6. MINOCIN [Concomitant]
     Indication: ACNE

REACTIONS (6)
  - Colitis ulcerative [Unknown]
  - Crohn^s disease [Unknown]
  - Inflammatory bowel disease [Unknown]
  - Emotional distress [Unknown]
  - Perineal abscess [Unknown]
  - Anal fistula [Unknown]
